APPROVED DRUG PRODUCT: CLEMASTINE FUMARATE
Active Ingredient: CLEMASTINE FUMARATE
Strength: EQ 0.5MG BASE/5ML
Dosage Form/Route: SYRUP;ORAL
Application: A075703 | Product #001
Applicant: APOTEX INC
Approved: Nov 27, 2000 | RLD: No | RS: No | Type: DISCN